FAERS Safety Report 21330792 (Version 1)
Quarter: 2022Q3

REPORT INFORMATION
  Report Type: Other
  Country: US (occurrence: None)
  Receive Date: 20220914
  Receipt Date: 20220914
  Transmission Date: 20221026
  Serious: Yes (Other)
  Sender: FDA-Public Use
  Company Number: US-ROCHE-2641488

PATIENT
  Age: 60 Year
  Sex: Male
  Weight: 86.260 kg

DRUGS (7)
  1. OCREVUS [Suspect]
     Active Substance: OCRELIZUMAB
     Indication: Relapsing-remitting multiple sclerosis
     Dosage: HALF DOSE?ONGOING: NO?INITIAL DOSE OF OCRELIZUMAB: INFUSE 300 MG ON DAY 1 AND DAY 15
     Route: 042
     Dates: start: 20200120, end: 20200204
  2. OCREVUS [Suspect]
     Active Substance: OCRELIZUMAB
     Dosage: FULL DOSE?ONGOING: YES? DATE OF TREATMENT:14/FEB/2020.?DOT: 2022-AUG-31, 2021-AUG-02, 2021-JAN-25, 2
     Route: 042
  3. VITAMIN D3 [Concomitant]
     Active Substance: CHOLECALCIFEROL
     Indication: Multiple sclerosis
     Route: 048
  4. AMLODIPINE [Concomitant]
     Active Substance: AMLODIPINE BESYLATE
     Indication: Hypertension
     Route: 048
     Dates: start: 2018
  5. BENAZEPRIL [Concomitant]
     Active Substance: BENAZEPRIL HYDROCHLORIDE
     Indication: Hypertension
     Route: 048
     Dates: start: 2017
  6. LORATADINE [Concomitant]
     Active Substance: LORATADINE
     Indication: Seasonal allergy
     Route: 048
     Dates: start: 202003
  7. GABAPENTIN [Concomitant]
     Active Substance: GABAPENTIN
     Indication: Nerve compression
     Route: 048
     Dates: start: 202005

REACTIONS (12)
  - Asthenia [Recovering/Resolving]
  - Musculoskeletal stiffness [Not Recovered/Not Resolved]
  - Bladder cancer [Not Recovered/Not Resolved]
  - COVID-19 [Recovered/Resolved]
  - Hypoaesthesia [Recovered/Resolved]
  - Asthenia [Recovered/Resolved]
  - Pain [Not Recovered/Not Resolved]
  - Intervertebral disc protrusion [Unknown]
  - Spinal stenosis [Unknown]
  - Lumbar spinal stenosis [Unknown]
  - Tendonitis [Recovered/Resolved]
  - Polyp [Recovered/Resolved]

NARRATIVE: CASE EVENT DATE: 20200501
